FAERS Safety Report 7356821-9 (Version None)
Quarter: 2011Q1

REPORT INFORMATION
  Report Type: 
  Country: None (occurrence: None)
  Receive Date: 20110317
  Receipt Date: 20110311
  Transmission Date: 20110831
  Serious: Yes (Hospitalization)
  Sender: FDA-Public Use
  Company Number: US-ELI_LILLY_AND_COMPANY-US201103003969

PATIENT
  Sex: Male
  Weight: 67.574 kg

DRUGS (12)
  1. TESSALON [Concomitant]
     Indication: COUGH
     Dates: start: 20110105
  2. PEMETREXED [Suspect]
     Indication: NON-SMALL CELL LUNG CANCER
     Dosage: 500 MG/M2, OTHER
     Route: 042
     Dates: start: 20110111
  3. DEXAMETHASONE [Concomitant]
     Indication: PREMEDICATION
     Dates: start: 20110105
  4. LEVAQUIN [Concomitant]
     Indication: PROPHYLAXIS
     Dates: start: 20110302
  5. LORAZEPAM [Concomitant]
     Indication: INSOMNIA
     Dates: start: 20110201
  6. PROCHLORPERAZINE [Concomitant]
     Indication: NAUSEA
     Dates: start: 20110107
  7. CARBOPLATIN [Suspect]
     Indication: NON-SMALL CELL LUNG CANCER
     Dosage: 6 D/F, OTHER
     Route: 042
     Dates: start: 20110111
  8. FOLIC ACID [Concomitant]
     Indication: PREMEDICATION
     Dates: start: 20110105
  9. VICODIN [Concomitant]
     Indication: COUGH
     Dates: start: 20110105
  10. MULTI-VITAMIN [Concomitant]
     Indication: SUPPLEMENTATION THERAPY
     Dates: start: 20110105
  11. VITAMIN B-12 [Concomitant]
     Indication: PREMEDICATION
     Dates: start: 20110107
  12. ONDANSETRON [Concomitant]
     Indication: NAUSEA
     Dates: start: 20110107

REACTIONS (5)
  - DYSPNOEA EXERTIONAL [None]
  - HYPOTENSION [None]
  - HYPOPHAGIA [None]
  - HAEMOGLOBIN DECREASED [None]
  - HAEMATOCRIT DECREASED [None]
